FAERS Safety Report 5377083-8 (Version None)
Quarter: 2007Q2

REPORT INFORMATION
  Report Type: 
  Country: None (occurrence: None)
  Receive Date: 20070530
  Receipt Date: 20070216
  Transmission Date: 20071010
  Serious: No
  Sender: FDA-Public Use
  Company Number: 2007PV030190

PATIENT
  Age: 71 Year
  Sex: Female

DRUGS (1)
  1. BYETTA [Suspect]
     Indication: PANCREATIC DISORDER
     Dosage: 5 MCG;BID;SC
     Route: 058
     Dates: start: 20070214

REACTIONS (3)
  - ANXIETY [None]
  - MUSCULOSKELETAL DISCOMFORT [None]
  - NAUSEA [None]
